FAERS Safety Report 13679395 (Version 3)
Quarter: 2017Q4

REPORT INFORMATION
  Report Type: Report from Study
  Country: US (occurrence: US)
  Receive Date: 20170622
  Receipt Date: 20171220
  Transmission Date: 20180320
  Serious: Yes (Hospitalization)
  Sender: FDA-Public Use
  Company Number: US-ASTRAZENECA-2017SE65001

PATIENT
  Age: 24050 Day
  Sex: Male
  Weight: 53.6 kg

DRUGS (2)
  1. MEDI4736 [Suspect]
     Active Substance: DURVALUMAB
     Indication: OROPHARYNGEAL SQUAMOUS CELL CARCINOMA
     Dosage: MONTHLY
     Route: 042
     Dates: start: 20170313, end: 20170607
  2. AZD9150 [Suspect]
     Active Substance: INVESTIGATIONAL PRODUCT
     Indication: OROPHARYNGEAL SQUAMOUS CELL CARCINOMA
     Dosage: WEEKLY
     Route: 042
     Dates: start: 20170306, end: 20170612

REACTIONS (1)
  - Mouth haemorrhage [Recovered/Resolved]

NARRATIVE: CASE EVENT DATE: 20170619
